FAERS Safety Report 6259674-5 (Version None)
Quarter: 2009Q3

REPORT INFORMATION
  Report Type: 
  Country: None (occurrence: None)
  Receive Date: 20090706
  Receipt Date: 20090706
  Transmission Date: 20100115
  Serious: Yes (Disabling)
  Sender: FDA-Public Use
  Company Number: None

PATIENT
  Sex: Female

DRUGS (1)
  1. POTASSIUM CHLORIDE [Suspect]
     Indication: DIURETIC THERAPY
     Dosage: 10MEQ ONCE DAILY PO
     Route: 048
     Dates: start: 20090610, end: 20090611

REACTIONS (2)
  - RASH GENERALISED [None]
  - SWELLING [None]
